FAERS Safety Report 22949600 (Version 2)
Quarter: 2023Q4

REPORT INFORMATION
  Report Type: Report from Study
  Country: US (occurrence: US)
  Receive Date: 20230915
  Receipt Date: 20231006
  Transmission Date: 20240109
  Serious: Yes (Hospitalization)
  Sender: FDA-Public Use
  Company Number: US-JNJFOC-20230911835

PATIENT
  Age: 20 Year
  Sex: Male

DRUGS (9)
  1. SPRAVATO [Suspect]
     Active Substance: ESKETAMINE
     Indication: Depression
     Dates: start: 20230830, end: 20230830
  2. SPRAVATO [Suspect]
     Active Substance: ESKETAMINE
     Dates: start: 20230901, end: 20230901
  3. ESCITALOPRAM [Concomitant]
     Active Substance: ESCITALOPRAM OXALATE
     Route: 048
     Dates: start: 20230906
  4. CARIPRAZINE [Concomitant]
     Active Substance: CARIPRAZINE
     Route: 048
     Dates: start: 20230906
  5. GUANFACINE [Concomitant]
     Active Substance: GUANFACINE
     Route: 048
  6. ADDERALL [Concomitant]
     Active Substance: AMPHETAMINE ASPARTATE\AMPHETAMINE SULFATE\DEXTROAMPHETAMINE SACCHARATE\DEXTROAMPHETAMINE SULFATE
     Route: 048
  7. EFFEXOR [Concomitant]
     Active Substance: VENLAFAXINE HYDROCHLORIDE
     Route: 065
  8. VRAYLAR [Concomitant]
     Active Substance: CARIPRAZINE
     Route: 065
  9. VRAYLAR [Concomitant]
     Active Substance: CARIPRAZINE
     Route: 065

REACTIONS (3)
  - Suicidal ideation [Recovered/Resolved]
  - Sedation [Recovered/Resolved]
  - Agitation [Unknown]

NARRATIVE: CASE EVENT DATE: 20230901
